FAERS Safety Report 24428712 (Version 1)
Quarter: 2024Q4

REPORT INFORMATION
  Report Type: Spontaneous
  Country: PR (occurrence: PR)
  Receive Date: 20241011
  Receipt Date: 20241011
  Transmission Date: 20250114
  Serious: No
  Sender: BRISTOL MYERS SQUIBB
  Company Number: PR-BRISTOL-MYERS SQUIBB COMPANY-2024-160974

PATIENT
  Age: 47 Year
  Sex: Female
  Weight: 76.66 kg

DRUGS (1)
  1. REVLIMID [Suspect]
     Active Substance: LENALIDOMIDE
     Indication: Product used for unknown indication
     Dates: start: 2015

REACTIONS (1)
  - Amenorrhoea [Recovering/Resolving]

NARRATIVE: CASE EVENT DATE: 20150101
